FAERS Safety Report 15415631 (Version 1)
Quarter: 2018Q3

REPORT INFORMATION
  Report Type: Other
  Country: IT (occurrence: IT)
  Receive Date: 20180922
  Receipt Date: 20180922
  Transmission Date: 20181010
  Serious: Yes (Hospitalization, Other)
  Sender: FDA-Public Use
  Company Number: IT-APOTEX-2018AP020816

PATIENT
  Age: 54 Year
  Sex: Female

DRUGS (3)
  1. PAROXETINE. [Suspect]
     Active Substance: PAROXETINE
     Indication: DEPRESSION
     Dosage: 1200 MG, IN TOTAL
     Route: 048
     Dates: start: 20180723, end: 20180723
  2. RISPERIDONE. [Suspect]
     Active Substance: RISPERIDONE
     Indication: DEPRESSION
     Dosage: 100 ML, IN TOTAL
     Route: 048
     Dates: start: 20180723, end: 20180723
  3. DELORAZEPAM [Suspect]
     Active Substance: DELORAZEPAM
     Indication: DEPRESSION
     Dosage: 20 ML, IN TOTAL
     Route: 048
     Dates: start: 20180723, end: 20180723

REACTIONS (3)
  - Somnolence [Unknown]
  - Confusional state [Unknown]
  - Drug abuse [Unknown]

NARRATIVE: CASE EVENT DATE: 20180723
